FAERS Safety Report 9177883 (Version 1)
Quarter: 2013Q1

REPORT INFORMATION
  Report Type: Spontaneous
  Country: US (occurrence: US)
  Receive Date: 20130321
  Receipt Date: 20130321
  Transmission Date: 20140127
  Serious: No
  Sender: FDA-Public Use
  Company Number: US-TEVA-392999USA

PATIENT
  Age: 21 Year
  Sex: Female
  Weight: 55.84 kg

DRUGS (7)
  1. PLAN B ONE-STEP [Suspect]
     Indication: POST COITAL CONTRACEPTION
     Dosage: 1.5 MILLIGRAM DAILY;
     Route: 048
     Dates: start: 20130315, end: 20130315
  2. EFFEXOR [Concomitant]
     Indication: DEPRESSION
  3. METOPROLOL [Concomitant]
     Indication: HEART RATE INCREASED
  4. AMBIEN [Concomitant]
     Indication: INSOMNIA
  5. ROSARUM [Concomitant]
     Indication: INSOMNIA
  6. XANAX [Concomitant]
     Indication: ANXIETY
  7. ATIVAN [Concomitant]
     Indication: ANXIETY

REACTIONS (2)
  - Nausea [Recovered/Resolved]
  - Vomiting [Recovered/Resolved]
